FAERS Safety Report 10726651 (Version 1)
Quarter: 2015Q1

REPORT INFORMATION
  Report Type: Spontaneous
  Country: US (occurrence: None)
  Receive Date: 20150120
  Receipt Date: 20150120
  Transmission Date: 20150721
  Serious: Yes (Life-Threatening)
  Sender: FDA-Public Use
  Company Number: None

PATIENT
  Age: 77 Year
  Sex: Female

DRUGS (8)
  1. DILTIAZEM [Concomitant]
     Active Substance: DILTIAZEM
  2. AMIODARONED 150 ML/3ML APP [Suspect]
     Active Substance: AMIODARONE
     Indication: DRUG THERAPY
     Dosage: 1 DOSE
  3. MIDAZOLAM [Concomitant]
     Active Substance: MIDAZOLAM\MIDAZOLAM HYDROCHLORIDE
  4. PROPOFOL. [Concomitant]
     Active Substance: PROPOFOL
  5. FENTANYL. [Concomitant]
     Active Substance: FENTANYL
  6. AMIODARONE [Concomitant]
     Active Substance: AMIODARONE
  7. AMIODARONED 150 ML/3ML APP [Suspect]
     Active Substance: AMIODARONE
     Dosage: 1 DOSE
  8. CLINDAMYCIN IV [Concomitant]

REACTIONS (3)
  - Feeling abnormal [None]
  - Cardio-respiratory arrest [None]
  - Infusion related reaction [None]

NARRATIVE: CASE EVENT DATE: 20141231
